FAERS Safety Report 24707083 (Version 1)
Quarter: 2024Q4

REPORT INFORMATION
  Report Type: Spontaneous
  Country: US (occurrence: US)
  Receive Date: 20241206
  Receipt Date: 20241206
  Transmission Date: 20250115
  Serious: Yes (Other)
  Sender: SYMOGEN
  Company Number: US-PARTNER THERAPEUTICS-2024PTX04085

PATIENT
  Age: 42 Year
  Sex: Male

DRUGS (4)
  1. SARGRAMOSTIM [Suspect]
     Active Substance: SARGRAMOSTIM
     Indication: Alveolar proteinosis
     Dosage: 500 ?G, 1X/DAY
  2. SARGRAMOSTIM [Suspect]
     Active Substance: SARGRAMOSTIM
     Dosage: 500 ?G, 2X/DAY
  3. SARGRAMOSTIM [Suspect]
     Active Substance: SARGRAMOSTIM
     Dosage: 750 ?G, 2X/DAY
  4. SARGRAMOSTIM [Suspect]
     Active Substance: SARGRAMOSTIM
     Dosage: 250 ?G, 1X/DAY

REACTIONS (2)
  - Pulmonary arterial hypertension [Recovered/Resolved]
  - Off label use [Not Recovered/Not Resolved]
